FAERS Safety Report 5503747-9 (Version None)
Quarter: 2007Q4

REPORT INFORMATION
  Report Type: 
  Country: None (occurrence: None)
  Receive Date: 20071029
  Receipt Date: 20071029
  Transmission Date: 20080405
  Serious: Yes (Hospitalization)
  Sender: FDA-Public Use
  Company Number: None

PATIENT
  Age: 60 Year
  Sex: Female
  Weight: 83 kg

DRUGS (30)
  1. DULOXETINE 60 MG ELI LILLY [Suspect]
     Indication: DEPRESSION
     Dosage: 60 MG BID PO
     Route: 048
     Dates: start: 20060501
  2. LORAZEPAM [Concomitant]
  3. CYANOCOBOLAMIN [Concomitant]
  4. ASPIRIN [Concomitant]
  5. INSULIN SLIDING SCALE [Concomitant]
  6. LIDOCAINE [Concomitant]
  7. CLONAZEPAM [Concomitant]
  8. ALBUTEROL SULFATE [Concomitant]
  9. ZOLPIDEM TARTRATE [Concomitant]
  10. SIMVASTATIN [Concomitant]
  11. SENNA-X [Concomitant]
  12. DICLOFENAC SODIUM [Concomitant]
  13. METFORMIN HCL [Concomitant]
  14. LEVOTHYROXINE SODIUM [Concomitant]
  15. LANTAPROST [Concomitant]
  16. HYDROCODONE BITARTRATE [Concomitant]
  17. FUROSEMIDE [Concomitant]
  18. FOLIC ACID [Concomitant]
  19. FLUTICASONE/SALMETEROL [Concomitant]
  20. FERROUS SULFATE TAB [Concomitant]
  21. NEXIUM [Concomitant]
  22. CYCLOBENZAPRINE HCL [Concomitant]
  23. CLOPIDOGREL [Concomitant]
  24. CALCIUM/VITAMIN D [Concomitant]
  25. CALCITONIN-SALMON [Concomitant]
  26. BUDESONIDE [Concomitant]
  27. ACETAMINOPHEN [Concomitant]
  28. SIMETHICONE [Concomitant]
  29. MAALOX [Concomitant]
  30. MILK OF MAGNESIA [Concomitant]

REACTIONS (3)
  - CONVULSION [None]
  - NEUROLOGICAL SYMPTOM [None]
  - SEROTONIN SYNDROME [None]
